FAERS Safety Report 8390755-6 (Version None)
Quarter: 2012Q2

REPORT INFORMATION
  Report Type: 
  Country: None (occurrence: None)
  Receive Date: 20120529
  Receipt Date: 20120521
  Transmission Date: 20120825
  Serious: Yes (Other)
  Sender: FDA-Public Use
  Company Number: US-JNJFOC-20120517521

PATIENT
  Age: 72 Year
  Sex: Male

DRUGS (8)
  1. CARVEDILOL [Concomitant]
  2. ASPIRIN [Concomitant]
  3. LISINOPRIL [Concomitant]
  4. HYDROCHLOROTHIAZIDE [Concomitant]
  5. AMLODIPINE BESYLATE [Concomitant]
  6. CRESTOR [Concomitant]
  7. XARELTO [Suspect]
     Indication: ATRIAL FIBRILLATION
     Route: 048
     Dates: start: 20120417, end: 20120520
  8. ISOSORBIDE MONONITRATE [Concomitant]

REACTIONS (3)
  - URINARY TRACT INFECTION [None]
  - PAIN [None]
  - CHROMATURIA [None]
